FAERS Safety Report 12491511 (Version 7)
Quarter: 2016Q3

REPORT INFORMATION
  Report Type: Report from Study
  Country: CA (occurrence: CA)
  Receive Date: 20160623
  Receipt Date: 20160926
  Transmission Date: 20161109
  Serious: Yes (Hospitalization, Other)
  Sender: FDA-Public Use
  Company Number: PHHY2014CA064055

PATIENT
  Age: 67 Year
  Sex: Female

DRUGS (2)
  1. SANDOSTATIN LAR DEPOT [Suspect]
     Active Substance: OCTREOTIDE ACETATE
     Indication: CARCINOID TUMOUR OF THE SMALL BOWEL
     Dosage: 20 MG, QMO (EVERY 4 WEEKS)
     Route: 030
     Dates: start: 20140422
  2. SANDOSTATIN LAR DEPOT [Suspect]
     Active Substance: OCTREOTIDE ACETATE
     Dosage: 30 MG, QMO (EVERY 4 WEEKS)
     Route: 030

REACTIONS (23)
  - Malignant neoplasm progression [Unknown]
  - Ear infection [Unknown]
  - Dyspnoea [Unknown]
  - Body temperature decreased [Not Recovered/Not Resolved]
  - Toothache [Unknown]
  - Urinary tract infection [Unknown]
  - Rash [Unknown]
  - Gastritis [Recovering/Resolving]
  - Vomiting [Recovering/Resolving]
  - Ureteric obstruction [Recovering/Resolving]
  - Blood pressure systolic increased [Unknown]
  - Nausea [Unknown]
  - Weight decreased [Unknown]
  - Renal neoplasm [Recovering/Resolving]
  - Heart rate decreased [Unknown]
  - Anxiety [Unknown]
  - Depressed mood [Unknown]
  - Procedural pain [Unknown]
  - Flank pain [Unknown]
  - Pain in extremity [Unknown]
  - Blood pressure diastolic decreased [Unknown]
  - Crying [Unknown]
  - Erythema [Unknown]

NARRATIVE: CASE EVENT DATE: 20140520
